FAERS Safety Report 7979415-0 (Version None)
Quarter: 2011Q4

REPORT INFORMATION
  Report Type: 
  Country: None (occurrence: None)
  Receive Date: 20111214
  Receipt Date: 20111208
  Transmission Date: 20120403
  Serious: Yes (Hospitalization)
  Sender: FDA-Public Use
  Company Number: US-GILEAD-2011-0047354

PATIENT
  Age: 44 Year
  Sex: Female

DRUGS (3)
  1. REVATIO [Concomitant]
  2. LETAIRIS [Suspect]
     Indication: PRODUCT USED FOR UNKNOWN INDICATION
     Dosage: 5 MG, UNK
     Route: 048
     Dates: start: 20110727
  3. TYVASO [Concomitant]

REACTIONS (5)
  - BACK PAIN [None]
  - ANGINA PECTORIS [None]
  - MUSCLE SPASMS [None]
  - HEADACHE [None]
  - RHINORRHOEA [None]
